FAERS Safety Report 9447504 (Version 2)
Quarter: 2013Q3

REPORT INFORMATION
  Report Type: Spontaneous
  Country: FR (occurrence: None)
  Receive Date: 20130805
  Receipt Date: 20130906
  Transmission Date: 20140515
  Serious: Yes (Hospitalization)
  Sender: FDA-Public Use
  Company Number: 7226097

PATIENT
  Sex: Female

DRUGS (1)
  1. LEVOTHYROX [Suspect]
     Indication: NODULE
     Route: 048

REACTIONS (1)
  - Arrhythmia [None]
